FAERS Safety Report 17771636 (Version 4)
Quarter: 2022Q2

REPORT INFORMATION
  Report Type: Spontaneous
  Country: BR (occurrence: BR)
  Receive Date: 20200512
  Receipt Date: 20220628
  Transmission Date: 20220721
  Serious: Yes (Other)
  Sender: FDA-Public Use
  Company Number: BR-GLAXOSMITHKLINE-BR2020AMR076926

PATIENT

DRUGS (1)
  1. SERETIDE [Suspect]
     Active Substance: FLUTICASONE PROPIONATE\SALMETEROL XINAFOATE
     Indication: Asthma
     Dosage: UNK, QD, 2 INHALATIONS, 50/500

REACTIONS (4)
  - Dermatitis exfoliative [Unknown]
  - Disease recurrence [Unknown]
  - Drug hypersensitivity [Unknown]
  - Product complaint [Unknown]

NARRATIVE: CASE EVENT DATE: 20191101
